FAERS Safety Report 9536474 (Version 1)
Quarter: 2013Q3

REPORT INFORMATION
  Report Type: Spontaneous
  Country: US (occurrence: None)
  Receive Date: 20130917
  Receipt Date: 20130917
  Transmission Date: 20140515
  Serious: No
  Sender: FDA-Public Use
  Company Number: None

PATIENT
  Age: 61 Year
  Sex: Female
  Weight: 74.84 kg

DRUGS (1)
  1. AMITIZA [Suspect]
     Indication: CONSTIPATION
     Dosage: 1 CAPSULE TWICE DAILY TAKEN BY MOUTH
     Route: 048
     Dates: start: 20130902, end: 20130909

REACTIONS (5)
  - Dizziness [None]
  - Nausea [None]
  - Abdominal distension [None]
  - Dyspepsia [None]
  - Insomnia [None]
